FAERS Safety Report 6246863-9 (Version None)
Quarter: 2009Q2

REPORT INFORMATION
  Report Type: 
  Country: None (occurrence: None)
  Receive Date: 20090626
  Receipt Date: 20090622
  Transmission Date: 20091009
  Serious: Yes (Hospitalization)
  Sender: FDA-Public Use
  Company Number: IT-BAYER-200923835GPV

PATIENT
  Age: 24 Year
  Sex: Male
  Weight: 54 kg

DRUGS (4)
  1. SORAFENIB [Suspect]
     Indication: HEPATIC NEOPLASM MALIGNANT
     Dosage: TOTAL DAILY DOSE: 800 MG
     Route: 048
     Dates: start: 20070919, end: 20090613
  2. CARDIRENE [Concomitant]
     Indication: MITRAL VALVE PROLAPSE
     Route: 048
  3. PANCREX [Concomitant]
     Indication: PANCREATIC DISORDER
     Route: 048
  4. ENOXAPARIN SODIUM [Concomitant]
     Indication: PLATELET COUNT INCREASED
     Route: 058

REACTIONS (3)
  - OEDEMA MOUTH [None]
  - PYREXIA [None]
  - RASH [None]
